FAERS Safety Report 6381208-5 (Version None)
Quarter: 2009Q3

REPORT INFORMATION
  Report Type: 
  Country: None (occurrence: None)
  Receive Date: 20090929
  Receipt Date: 20090918
  Transmission Date: 20100115
  Serious: Yes (Hospitalization)
  Sender: FDA-Public Use
  Company Number: US-JNJFOC-20090804375

PATIENT
  Sex: Female
  Weight: 34.2 kg

DRUGS (10)
  1. INFLIXIMAB [Suspect]
     Route: 042
  2. INFLIXIMAB [Suspect]
     Indication: INFLAMMATORY BOWEL DISEASE
     Route: 042
  3. CLINDAMYCIN [Concomitant]
  4. MESALAMINE [Concomitant]
  5. FLUCONAZOLE [Concomitant]
  6. VANCOMYCIN [Concomitant]
  7. CEFTAZIDIME [Concomitant]
  8. AUGMENTIN [Concomitant]
  9. FLAGYL [Concomitant]
  10. KEFLEX [Concomitant]

REACTIONS (1)
  - CROHN'S DISEASE [None]
